FAERS Safety Report 4711518-6 (Version None)
Quarter: 2005Q3

REPORT INFORMATION
  Report Type: 
  Country: None (occurrence: None)
  Receive Date: 20050711
  Receipt Date: 20050711
  Transmission Date: 20060218
  Serious: Yes (Other)
  Sender: FDA-Public Use
  Company Number: None

PATIENT
  Age: 66 Year
  Sex: Male
  Weight: 88.6782 kg

DRUGS (16)
  1. CYCLOPHOSPHAMIDE [Suspect]
     Indication: PROSTATE CANCER METASTATIC
     Dosage: 100 MG   QHS   ORAL
     Route: 048
     Dates: start: 20050311, end: 20050628
  2. ETOPOSIDE [Suspect]
     Dosage: 100MG   QHS   ORAL
     Route: 048
     Dates: start: 20050311, end: 20050628
  3. ESTRAMUSTINE      140 MG [Suspect]
     Dosage: 280MG   QHS   ORAL
     Route: 048
     Dates: start: 20050311, end: 20050628
  4. COUMADIN [Concomitant]
  5. SENOKOT [Concomitant]
  6. DOCUSATE [Concomitant]
  7. ENALAPRIL MALEATE [Concomitant]
  8. HYDROCHLOROTHIAZIDE [Concomitant]
  9. BEXTRA [Concomitant]
  10. NEXIUM [Concomitant]
  11. FLOMAX [Concomitant]
  12. DURAGESIC-100 [Concomitant]
  13. VITAMIN C AND E [Concomitant]
  14. ASPIRIN [Concomitant]
  15. CENTRIUM [Concomitant]
  16. GELENIUM [Concomitant]

REACTIONS (3)
  - DYSARTHRIA [None]
  - NEUROPATHY [None]
  - PARAESTHESIA [None]
